FAERS Safety Report 10094338 (Version 1)
Quarter: 2014Q2

REPORT INFORMATION
  Report Type: Spontaneous
  Country: US (occurrence: US)
  Receive Date: 20140422
  Receipt Date: 20140422
  Transmission Date: 20141212
  Serious: No
  Sender: FDA-Public Use
  Company Number: US-BRISTOL-MYERS SQUIBB COMPANY-19904606

PATIENT
  Age: 80 Year
  Sex: Female
  Weight: 58 kg

DRUGS (1)
  1. HYDROXYUREA [Suspect]

REACTIONS (3)
  - Capillary fragility [Unknown]
  - Pyrexia [Unknown]
  - Off label use [Unknown]
